FAERS Safety Report 4303294-6 (Version None)
Quarter: 2004Q1

REPORT INFORMATION
  Report Type: 
  Country: None (occurrence: None)
  Receive Date: 20040223
  Receipt Date: 20040217
  Transmission Date: 20041129
  Serious: Yes (Other)
  Sender: FDA-Public Use
  Company Number: 2004199220JP

PATIENT

DRUGS (2)
  1. HALCION [Suspect]
     Dosage: ORAL
     Route: 048
  2. ARTIST [Concomitant]

REACTIONS (2)
  - BRADYCARDIA [None]
  - RESPIRATORY DEPRESSION [None]
